FAERS Safety Report 8151398 (Version 5)
Quarter: 2014Q1

REPORT INFORMATION
  Report Type: Spontaneous
  Country: US (occurrence: US)
  Receive Date: 20110922
  Receipt Date: 20140319
  Transmission Date: 20141002
  Serious: Yes (Hospitalization, Other)
  Sender: FDA-Public Use
  Company Number: US-ASTRAZENECA-2011SE13039

PATIENT
  Age: 50 Year
  Sex: Female
  Weight: 69.9 kg

DRUGS (43)
  1. SEROQUEL [Suspect]
     Indication: MAJOR DEPRESSION
     Route: 048
     Dates: start: 2008
  2. SEROQUEL [Suspect]
     Indication: DEPRESSION
     Route: 048
     Dates: start: 2008
  3. SEROQUEL [Suspect]
     Indication: MAJOR DEPRESSION
     Route: 048
     Dates: start: 201103, end: 201103
  4. SEROQUEL [Suspect]
     Indication: DEPRESSION
     Route: 048
     Dates: start: 201103, end: 201103
  5. SEROQUEL [Suspect]
     Indication: MAJOR DEPRESSION
     Route: 048
     Dates: start: 2008, end: 201012
  6. SEROQUEL [Suspect]
     Indication: DEPRESSION
     Route: 048
     Dates: start: 2008, end: 201012
  7. SEROQUEL [Suspect]
     Indication: MAJOR DEPRESSION
     Route: 048
     Dates: start: 201012, end: 201103
  8. SEROQUEL [Suspect]
     Indication: DEPRESSION
     Route: 048
     Dates: start: 201012, end: 201103
  9. SEROQUEL [Suspect]
     Indication: MAJOR DEPRESSION
     Route: 048
  10. SEROQUEL [Suspect]
     Indication: DEPRESSION
     Route: 048
  11. SEROQUEL [Suspect]
     Indication: MAJOR DEPRESSION
     Route: 048
  12. SEROQUEL [Suspect]
     Indication: DEPRESSION
     Route: 048
  13. SEROQUEL [Suspect]
     Indication: MAJOR DEPRESSION
     Route: 048
     Dates: start: 2008, end: 201401
  14. SEROQUEL [Suspect]
     Indication: DEPRESSION
     Route: 048
     Dates: start: 2008, end: 201401
  15. SEROQUEL [Suspect]
     Indication: MAJOR DEPRESSION
     Route: 048
  16. SEROQUEL [Suspect]
     Indication: DEPRESSION
     Route: 048
  17. SEROQUEL [Suspect]
     Indication: MAJOR DEPRESSION
     Dosage: 50MG THREE TIMES A DAY AND 100MG AT NIGHT FOR A TOTAL OF 250MG A DAY
     Route: 048
     Dates: start: 2009
  18. SEROQUEL [Suspect]
     Indication: DEPRESSION
     Dosage: 50MG THREE TIMES A DAY AND 100MG AT NIGHT FOR A TOTAL OF 250MG A DAY
     Route: 048
     Dates: start: 2009
  19. SEROQUEL [Suspect]
     Indication: MAJOR DEPRESSION
     Route: 048
  20. SEROQUEL [Suspect]
     Indication: DEPRESSION
     Route: 048
  21. SEROQUEL [Suspect]
     Indication: MAJOR DEPRESSION
     Dosage: 100MG IN THE MORNING AND AT NIGHT AND 50MG THREE TIMES A DAY, 350 MG DAILY
     Route: 048
     Dates: start: 20131123
  22. SEROQUEL [Suspect]
     Indication: DEPRESSION
     Dosage: 100MG IN THE MORNING AND AT NIGHT AND 50MG THREE TIMES A DAY, 350 MG DAILY
     Route: 048
     Dates: start: 20131123
  23. SEROQUEL [Suspect]
     Indication: MAJOR DEPRESSION
     Route: 048
     Dates: end: 201311
  24. SEROQUEL [Suspect]
     Indication: DEPRESSION
     Route: 048
     Dates: end: 201311
  25. NEXIUM [Suspect]
     Indication: GASTRIC BYPASS
     Route: 048
     Dates: start: 2005, end: 2007
  26. OMEPRAZOLE [Suspect]
     Indication: GASTRIC BYPASS
     Route: 048
     Dates: start: 2010, end: 2011
  27. BENZODIAPZEPINE [Suspect]
     Route: 065
  28. PRISTIQ [Concomitant]
     Indication: DEPRESSION
     Route: 048
  29. VYCODAN [Concomitant]
  30. XANAX [Concomitant]
     Indication: DEATH OF RELATIVE
     Route: 048
     Dates: start: 2007
  31. XANAX [Concomitant]
     Indication: PANIC ATTACK
     Route: 048
     Dates: start: 2007
  32. XANAX [Concomitant]
     Indication: DEATH OF RELATIVE
  33. XANAX [Concomitant]
     Indication: PANIC ATTACK
  34. NORCO [Concomitant]
     Indication: ARTHRALGIA
     Dosage: 10/ 325 EVERY 4 HOURS
     Route: 048
     Dates: start: 2004
  35. NORCO [Concomitant]
     Indication: PAIN
     Dosage: 10/ 325 EVERY 4 HOURS
     Route: 048
     Dates: start: 2004
  36. DEXILANT [Concomitant]
     Indication: GASTRIC BYPASS
     Route: 048
  37. EDARBYCLO [Concomitant]
     Indication: HYPERTENSION
     Dosage: 40/12.5, DAILY
     Route: 048
     Dates: start: 2012
  38. ATENOLOL MALEATE [Concomitant]
     Indication: INTRAOCULAR PRESSURE INCREASED
     Dosage: 1 DROP EACH EYE, BID
     Route: 050
     Dates: start: 2005
  39. ESTRADIOL [Concomitant]
     Indication: HYSTERECTOMY
     Dosage: 1 MG, QOD
     Route: 048
     Dates: start: 2001
  40. ESTRADIOL [Concomitant]
     Indication: HORMONE REPLACEMENT THERAPY
     Dosage: 1 MG, QOD
     Route: 048
     Dates: start: 2001
  41. SOMA [Concomitant]
     Indication: ARTHRALGIA
     Route: 048
     Dates: start: 2008
  42. ACIPHEX [Concomitant]
     Indication: POST PROCEDURAL COMPLICATION
  43. DIOVAN [Concomitant]
     Indication: HYPERTENSION

REACTIONS (26)
  - Renal failure acute [Unknown]
  - Coma [Unknown]
  - Sinus arrhythmia [Unknown]
  - Drug withdrawal syndrome [Unknown]
  - Insomnia [Unknown]
  - Crying [Unknown]
  - Depression [Recovered/Resolved]
  - Headache [Not Recovered/Not Resolved]
  - Feeling jittery [Unknown]
  - Migraine [Unknown]
  - Abdominal discomfort [Not Recovered/Not Resolved]
  - Aphagia [Unknown]
  - Nausea [Unknown]
  - Anxiety [Unknown]
  - Disturbance in attention [Unknown]
  - Hypertension [Unknown]
  - Diarrhoea [Unknown]
  - Weight decreased [Unknown]
  - Therapeutic response unexpected [Unknown]
  - Fatigue [Unknown]
  - Sick sinus syndrome [Unknown]
  - Weight increased [Unknown]
  - Tremor [Not Recovered/Not Resolved]
  - Restlessness [Unknown]
  - Drug ineffective [Unknown]
  - Drug dose omission [Unknown]
